FAERS Safety Report 7467458-5 (Version None)
Quarter: 2011Q2

REPORT INFORMATION
  Report Type: 
  Country: None (occurrence: None)
  Receive Date: 20110509
  Receipt Date: 20110406
  Transmission Date: 20111010
  Serious: No
  Sender: FDA-Public Use
  Company Number: US-SANOFI-AVENTIS-2011SA021781

PATIENT
  Sex: Female

DRUGS (3)
  1. HUMALOG [Concomitant]
     Dates: end: 20110301
  2. APIDRA [Suspect]
     Route: 058
     Dates: start: 20110314, end: 20110314
  3. HUMALOG [Concomitant]
     Dates: start: 20110301

REACTIONS (2)
  - RASH GENERALISED [None]
  - URTICARIA [None]
